FAERS Safety Report 8594170-1 (Version None)
Quarter: 2012Q3

REPORT INFORMATION
  Report Type: 
  Country: None (occurrence: None)
  Receive Date: 20120814
  Receipt Date: 20120730
  Transmission Date: 20120928
  Serious: Yes (Hospitalization, Other)
  Sender: FDA-Public Use
  Company Number: CHPA2012US017018

PATIENT
  Sex: Female

DRUGS (3)
  1. EXCEDRIN (MIGRAINE) [Suspect]
     Dosage: UNK, UNK
     Route: 048
  2. EXCEDRIN EXTRA STRENGTH TABLETS [Suspect]
     Indication: RESTLESS LEGS SYNDROME
     Dosage: 2 DF, 2-3 TIMES A DAY
     Route: 048
  3. DRUG THERAPY NOS [Concomitant]
     Indication: BLOOD PRESSURE ABNORMAL

REACTIONS (11)
  - BACK DISORDER [None]
  - ULCER HAEMORRHAGE [None]
  - VOMITING [None]
  - INCORRECT DRUG ADMINISTRATION DURATION [None]
  - OFF LABEL USE [None]
  - DRUG ADMINISTRATION ERROR [None]
  - UNDERDOSE [None]
  - ASTHENIA [None]
  - PAIN [None]
  - FEELING ABNORMAL [None]
  - DIZZINESS [None]
